FAERS Safety Report 4405290-7 (Version None)
Quarter: 2004Q3

REPORT INFORMATION
  Report Type: 
  Country: None (occurrence: None)
  Receive Date: 20040716
  Receipt Date: 20040702
  Transmission Date: 20050211
  Serious: Yes (Hospitalization)
  Sender: FDA-Public Use
  Company Number: 2004-DE-03715GD (0)

PATIENT
  Age: 49 Year
  Sex: Male

DRUGS (2)
  1. CLARITHROMYCIN [Suspect]
     Indication: BRONCHITIS
     Dosage: 1000 MG (NR, TWICE), NR
  2. SIMVASTATIN [Suspect]
     Indication: HYPERLIPIDAEMIA
     Dosage: 80 MG (NR, ONCE), NR

REACTIONS (3)
  - DRUG INTERACTION [None]
  - HAEMODIALYSIS [None]
  - RHABDOMYOLYSIS [None]
